FAERS Safety Report 4874947-6 (Version None)
Quarter: 2006Q1

REPORT INFORMATION
  Report Type: 
  Country: None (occurrence: None)
  Receive Date: 20060105
  Receipt Date: 20051228
  Transmission Date: 20060701
  Serious: Yes (Other)
  Sender: FDA-Public Use
  Company Number: 200514267BCC

PATIENT
  Age: 83 Year
  Sex: Female
  Weight: 60.782 kg

DRUGS (6)
  1. ALEVE [Suspect]
     Indication: PAIN IN EXTREMITY
     Dosage: 220 MG, BID, ORAL
     Route: 048
     Dates: start: 20051022
  2. LABETALOL [Concomitant]
  3. LISINOPRIL [Concomitant]
  4. ACIPHEX [Concomitant]
  5. FLURAZEPAM [Concomitant]
  6. NORVASC [Concomitant]

REACTIONS (2)
  - CONDITION AGGRAVATED [None]
  - HYPERTENSION [None]
